FAERS Safety Report 22631095 (Version 1)
Quarter: 2023Q2

REPORT INFORMATION
  Report Type: Spontaneous
  Country: CA (occurrence: None)
  Receive Date: 20230622
  Receipt Date: 20230622
  Transmission Date: 20230722
  Serious: Yes (Other)
  Sender: FDA-Public Use
  Company Number: 2023A142002

PATIENT
  Age: 58 Year
  Sex: Female

DRUGS (1)
  1. FULVESTRANT [Suspect]
     Active Substance: FULVESTRANT
     Indication: Hormone receptor positive breast cancer
     Dosage: 250.0MG UNKNOWN
     Route: 030

REACTIONS (3)
  - Hormone receptor positive breast cancer [Unknown]
  - Malignant neoplasm progression [Unknown]
  - Drug ineffective [Unknown]
